FAERS Safety Report 5340078-4 (Version None)
Quarter: 2007Q2

REPORT INFORMATION
  Report Type: 
  Country: None (occurrence: None)
  Receive Date: 20070525
  Receipt Date: 20070525
  Transmission Date: 20071010
  Serious: Yes (Hospitalization)
  Sender: FDA-Public Use
  Company Number: None

PATIENT
  Age: 81 Year
  Sex: Male
  Weight: 53 kg

DRUGS (7)
  1. WARFARIN SODIUM [Suspect]
     Indication: ATRIAL FIBRILLATION
     Dosage: 2 MG DAILY PO CHRONIC
     Route: 048
  2. LEVOFLOXACIN [Suspect]
     Indication: LUNG INFILTRATION
     Dosage: RECENT
  3. TOPROL-XL [Concomitant]
  4. DIGOXIN [Concomitant]
  5. IRON [Concomitant]
  6. VIT C [Concomitant]
  7. VICODIN [Concomitant]

REACTIONS (8)
  - ANAEMIA [None]
  - CARDIAC ARREST [None]
  - GASTRITIS EROSIVE [None]
  - HAEMORRHAGE [None]
  - INTERNATIONAL NORMALISED RATIO INCREASED [None]
  - PNEUMONIA [None]
  - SEPSIS [None]
  - STAPHYLOCOCCAL BACTERAEMIA [None]
